FAERS Safety Report 6996541-3 (Version None)
Quarter: 2010Q3

REPORT INFORMATION
  Report Type: 
  Country: None (occurrence: None)
  Receive Date: 20100918
  Receipt Date: 20090324
  Transmission Date: 20110219
  Serious: No
  Sender: FDA-Public Use
  Company Number: US-WYE-H08705009

PATIENT
  Sex: Female

DRUGS (4)
  1. EFFEXOR XR [Suspect]
     Indication: DEPRESSION
     Route: 048
     Dates: start: 20090301, end: 20090301
  2. EFFEXOR XR [Suspect]
     Route: 048
     Dates: start: 20090301
  3. EFFEXOR XR [Suspect]
     Dosage: UNSPECIFIED
     Route: 048
     Dates: start: 20080101
  4. XANAX [Concomitant]

REACTIONS (1)
  - OROPHARYNGEAL SPASM [None]
